FAERS Safety Report 7947897-6 (Version None)
Quarter: 2011Q4

REPORT INFORMATION
  Report Type: 
  Country: None (occurrence: None)
  Receive Date: 20111121
  Receipt Date: 20111108
  Transmission Date: 20120403
  Serious: Yes (Other)
  Sender: FDA-Public Use
  Company Number: 2011SP052736

PATIENT
  Age: 47 Year
  Sex: Female

DRUGS (13)
  1. ELCATONIN [Concomitant]
  2. MECOBALAMIN [Concomitant]
  3. SEVELAMER HYDROCHLORIDE [Concomitant]
  4. LACTIC ACID [Concomitant]
  5. LANTHANUM CARBONATE [Concomitant]
  6. ELCATONIN [Concomitant]
  7. MIRTAZAPINE [Suspect]
     Indication: PRODUCT USED FOR UNKNOWN INDICATION
     Dosage: 15 MG;QD;PO
     Route: 048
  8. MITIGLINIDE CALCIUM [Concomitant]
  9. SENNOSIDE [Concomitant]
  10. LANSOPRAZOLE [Concomitant]
  11. BETAHISTINE MESILATE [Concomitant]
  12. VOGLIBOSE [Concomitant]
  13. EPERISONE HYDROCHLORIDE [Concomitant]

REACTIONS (2)
  - BLOOD CALCIUM INCREASED [None]
  - BLOOD MAGNESIUM INCREASED [None]
